FAERS Safety Report 9803988 (Version 2)
Quarter: 2014Q1

REPORT INFORMATION
  Report Type: Spontaneous
  Country: GB (occurrence: GB)
  Receive Date: 20140108
  Receipt Date: 20140108
  Transmission Date: 20141002
  Serious: Yes (Other)
  Sender: FDA-Public Use
  Company Number: GB-ACTAVIS-2013-23328

PATIENT
  Age: 64 Year
  Sex: Male

DRUGS (6)
  1. TRAMADOL (UNKNOWN) [Suspect]
     Indication: POSTOPERATIVE ANALGESIA
     Dosage: 50-100 MG QDS PRN
     Route: 048
     Dates: start: 20131115
  2. PARACETAMOL [Concomitant]
     Indication: PRODUCT USED FOR UNKNOWN INDICATION
     Dosage: UNK
     Route: 065
  3. PARACETAMOL [Concomitant]
     Indication: ANALGESIC THERAPY
     Dosage: PARACETAMOL BRISTOL LABS.??DAILY DOSE: QDSPRN
     Route: 048
     Dates: start: 20131113
  4. CELECOXIB [Concomitant]
     Indication: ANALGESIC THERAPY
     Dosage: 200 MG, BID
     Route: 048
     Dates: start: 20131113
  5. DABIGATRAN [Concomitant]
     Indication: THROMBOSIS PROPHYLAXIS
     Dosage: 1 DOSAGE DAILY
     Route: 048
     Dates: start: 20131113
  6. OMEPRAZOLE [Concomitant]
     Indication: PROPHYLAXIS AGAINST GASTROINTESTINAL ULCER
     Dosage: 20 MG, UNK
     Route: 048
     Dates: start: 20131113

REACTIONS (2)
  - Urinary retention [Recovered/Resolved]
  - Prostatomegaly [Unknown]
